FAERS Safety Report 8361670-9 (Version None)
Quarter: 2012Q2

REPORT INFORMATION
  Report Type: 
  Country: None (occurrence: None)
  Receive Date: 20120515
  Receipt Date: 20110930
  Transmission Date: 20120825
  Serious: No
  Sender: FDA-Public Use
  Company Number: US-ABBOTT-11P-163-0861509-00

PATIENT
  Age: 46 Year
  Sex: Female
  Weight: 59.02 kg

DRUGS (2)
  1. PROMETRIUM [Suspect]
     Dosage: TEN DAYS EACH MONTH
     Dates: start: 20110914, end: 20110918
  2. PROMETRIUM [Suspect]
     Indication: HORMONE THERAPY
     Dosage: FOR TEN DAYS A MONTH EACH MONTH
     Dates: start: 19950101, end: 20110101

REACTIONS (2)
  - HYPERHIDROSIS [None]
  - PALPITATIONS [None]
